FAERS Safety Report 5087264-9 (Version None)
Quarter: 2006Q3

REPORT INFORMATION
  Report Type: 
  Country: None (occurrence: None)
  Receive Date: 20060821
  Receipt Date: 20060808
  Transmission Date: 20061208
  Serious: Yes (Other)
  Sender: FDA-Public Use
  Company Number: GXKR2006DE04723

PATIENT
  Age: 60 Year
  Sex: Female

DRUGS (2)
  1. METHYLPREDNISOLONE [Suspect]
     Indication: LIVER TRANSPLANT REJECTION
     Dosage: 500 MG, UNK; INFUSION, 2 MG, QD,
  2. TACROLIMUS (TACROLIMUS) [Suspect]
     Indication: IMMUNOSUPPRESSANT DRUG THERAPY
     Dosage: 2 MG, BID;

REACTIONS (3)
  - DIARRHOEA HAEMORRHAGIC [None]
  - INFLAMMATORY BOWEL DISEASE [None]
  - WEIGHT DECREASED [None]
